FAERS Safety Report 16199338 (Version 2)
Quarter: 2019Q3

REPORT INFORMATION
  Report Type: Spontaneous
  Country: CA (occurrence: CA)
  Receive Date: 20190415
  Receipt Date: 20190712
  Transmission Date: 20191004
  Serious: Yes (Other)
  Sender: FDA-Public Use
  Company Number: CA-009507513-1904CAN006094

PATIENT
  Age: 44 Year
  Sex: Female
  Weight: 63 kg

DRUGS (56)
  1. ADALIMUMAB [Suspect]
     Active Substance: ADALIMUMAB
     Indication: PRODUCT USED FOR UNKNOWN INDICATION
     Dosage: 40.0 MILLIGRAM
     Route: 058
  2. AMITRIPTYLINE PAMOATE [Suspect]
     Active Substance: AMITRIPTYLINE PAMOATE
     Indication: PRODUCT USED FOR UNKNOWN INDICATION
     Dosage: 75.0 MILLIGRAM, 1 EVERY 1 DAY (S)
     Route: 048
  3. DEPO-MEDROL [Suspect]
     Active Substance: METHYLPREDNISOLONE ACETATE
     Indication: RHEUMATOID ARTHRITIS
     Dosage: UNK
     Route: 014
  4. METHYLPREDNISOLONE ACETATE. [Suspect]
     Active Substance: METHYLPREDNISOLONE ACETATE
     Indication: RHEUMATOID ARTHRITIS
     Dosage: UNK
     Route: 014
  5. PANTOLOC [Suspect]
     Active Substance: PANTOPRAZOLE SODIUM
     Indication: PRODUCT USED FOR UNKNOWN INDICATION
     Dosage: DOSAGE FORM: TABLET (ENTERIC COATED)
     Route: 048
  6. PANTOPRAZOLE [Suspect]
     Active Substance: PANTOPRAZOLE
     Indication: PRODUCT USED FOR UNKNOWN INDICATION
     Dosage: DOSAGE FORM: NOT SPECIFIED
     Route: 048
  7. METHOTREXATE. [Suspect]
     Active Substance: METHOTREXATE
     Dosage: UNK
     Route: 058
  8. SULFASALAZINE. [Suspect]
     Active Substance: SULFASALAZINE
     Indication: RHEUMATOID ARTHRITIS
     Dosage: 1.0 GRAM, 1 EVERY 1 DAY(S), DOSAGE FORM: NOT SPECIFIED
     Route: 048
  9. PREDNISONE. [Suspect]
     Active Substance: PREDNISONE
     Indication: RHEUMATOID ARTHRITIS
     Dosage: 15.0 MILLIGRAM, 1 EVERY 1 DAY
     Route: 048
  10. TOFACITINIB CITRATE [Suspect]
     Active Substance: TOFACITINIB CITRATE
     Indication: RHEUMATOID ARTHRITIS
     Dosage: 10.0 MILLIGRAM, 1 EVERY 1 DAY(S)
     Route: 048
  11. XELJANZ [Suspect]
     Active Substance: TOFACITINIB CITRATE
     Dosage: 2 DOSAGE FORM, 1 EVERY 1 DAY(S)
     Route: 048
  12. NAPROXEN. [Concomitant]
     Active Substance: NAPROXEN
  13. APO NAPROXEN [Suspect]
     Active Substance: NAPROXEN
     Dosage: 250 MILLIGRAM, 2 EVERY 1 DAY (S)
     Route: 048
  14. APO NAPROXEN [Suspect]
     Active Substance: NAPROXEN
     Dosage: 250 MILLIGRAM, 2 EVERY 1 DAY (S)
     Route: 048
  15. APO NAPROXEN [Suspect]
     Active Substance: NAPROXEN
     Dosage: 1000.0 MILLIGRAM, 1 EVERY 1 DAY (S)
     Route: 048
  16. APO RANITIDINE [Suspect]
     Active Substance: RANITIDINE
     Indication: PRODUCT USED FOR UNKNOWN INDICATION
     Dosage: 300.0 MILLIGRAM, 1 EVERY 1 DAY (S)
     Route: 048
  17. RANITIDINE. [Suspect]
     Active Substance: RANITIDINE
     Indication: PRODUCT USED FOR UNKNOWN INDICATION
     Dosage: 300.0 MILLIGRAM, 1 EVER 1 DAY
     Route: 048
  18. APO-MELOXICAM [Suspect]
     Active Substance: MELOXICAM
     Indication: PRODUCT USED FOR UNKNOWN INDICATION
     Dosage: 150.0 MILLIGRAM, 1 EVERY 1 DAY (S)
     Route: 065
  19. APO RANITIDINE [Suspect]
     Active Substance: RANITIDINE
     Dosage: 150.0 MILLIGRAM, 2 EVERY 1 DAY (S)
     Route: 048
  20. ESOMEPRAZOLE SODIUM. [Suspect]
     Active Substance: ESOMEPRAZOLE SODIUM
     Indication: PRODUCT USED FOR UNKNOWN INDICATION
     Dosage: UNK
     Route: 065
  21. MOBICOX [Suspect]
     Active Substance: MELOXICAM
     Indication: PRODUCT USED FOR UNKNOWN INDICATION
     Dosage: UNK
     Route: 065
  22. SEPTRA [Suspect]
     Active Substance: SULFAMETHOXAZOLE\TRIMETHOPRIM
     Indication: PRODUCT USED FOR UNKNOWN INDICATION
     Dosage: UNK
     Route: 065
  23. MELOXICAM. [Suspect]
     Active Substance: MELOXICAM
     Indication: PRODUCT USED FOR UNKNOWN INDICATION
     Route: 065
  24. XELJANZ [Suspect]
     Active Substance: TOFACITINIB CITRATE
     Indication: RHEUMATOID ARTHRITIS
     Dosage: 10.0 MILLIGRAM, 1 EVERY 1 DAY(S)
     Route: 048
  25. XELJANZ [Suspect]
     Active Substance: TOFACITINIB CITRATE
     Dosage: 5.0 MILLIGRAM, 2 EVERY 1 DAY(S)
     Route: 048
  26. FOSAMAX [Suspect]
     Active Substance: ALENDRONATE SODIUM
     Indication: PRODUCT USED FOR UNKNOWN INDICATION
     Dosage: UNK
     Route: 065
  27. ALENDRONIC ACID [Suspect]
     Active Substance: ALENDRONIC ACID
     Indication: PRODUCT USED FOR UNKNOWN INDICATION
     Dosage: UNK
     Route: 065
  28. APO PREDNISONE [Suspect]
     Active Substance: PREDNISONE
     Indication: RHEUMATOID ARTHRITIS
     Dosage: 15.0 MILLIGRAM, 1 EVERY 1 DAY
     Route: 065
  29. HUMIRA [Suspect]
     Active Substance: ADALIMUMAB
     Indication: DRUG THERAPY
     Dosage: 40.0 MILLIGRAM, DOSAGE FORM: SOLUTION SUBCUTANEOUS
     Route: 058
  30. LYRICA [Suspect]
     Active Substance: PREGABALIN
     Indication: RHEUMATOID ARTHRITIS
     Dosage: 150.0 MILLIGRAM, 2 EVERY 1 DAY(S)
     Route: 048
  31. PREGABALIN. [Suspect]
     Active Substance: PREGABALIN
     Indication: RHEUMATOID ARTHRITIS
     Dosage: 300.0 MILLIGRAM, 1 EVERY 1 DAY(S)
     Route: 048
  32. TRIMETHOPRIM. [Suspect]
     Active Substance: TRIMETHOPRIM
     Indication: PRODUCT USED FOR UNKNOWN INDICATION
     Route: 065
  33. CELEBREX [Concomitant]
     Active Substance: CELECOXIB
     Indication: PRODUCT USED FOR UNKNOWN INDICATION
     Dosage: UNK
     Route: 065
  34. PLAQUENIL [Concomitant]
     Active Substance: HYDROXYCHLOROQUINE SULFATE
     Indication: PRODUCT USED FOR UNKNOWN INDICATION
     Dosage: UNK
     Route: 065
  35. ACETAMINOPHEN (+) OXYCODONE HYDROCHLORIDE [Suspect]
     Active Substance: ACETAMINOPHEN\OXYCODONE HYDROCHLORIDE
     Indication: PRODUCT USED FOR UNKNOWN INDICATION
     Dosage: UNK
     Route: 065
  36. APO AMITRIPTYLINE [Suspect]
     Active Substance: AMITRIPTYLINE
     Dosage: 75.0 MILLIGRAM, 1 EVERY 1 DAY (S)
     Route: 048
  37. APO NAPROXEN [Suspect]
     Active Substance: NAPROXEN
     Indication: PRODUCT USED FOR UNKNOWN INDICATION
     Dosage: 500.0 MILLIGRAM, 2 EVERY 1 DAY, DOSAGE FORM: NOT SPECIFIED
     Route: 048
  38. APO NAPROXEN [Suspect]
     Active Substance: NAPROXEN
     Indication: PRODUCT USED FOR UNKNOWN INDICATION
     Dosage: 500.0 MILLIGRAM, 1 EVERY 1 DAY (S)
     Route: 048
  39. APO NAPROXEN [Suspect]
     Active Substance: NAPROXEN
     Dosage: 1000.0 MILLIGRAM, 1 EVERY 1 DAY (S)
     Route: 048
  40. ESOMEPRAZOLE MAGNESIUM (+) NAPROXEN [Suspect]
     Active Substance: ESOMEPRAZOLE MAGNESIUM\NAPROXEN
     Indication: PRODUCT USED FOR UNKNOWN INDICATION
     Dosage: UNK
     Route: 048
  41. OXYCOCET [Suspect]
     Active Substance: ACETAMINOPHEN\OXYCODONE HYDROCHLORIDE
     Indication: PRODUCT USED FOR UNKNOWN INDICATION
     Dosage: UNK
     Route: 065
  42. AZATHIOPRINE. [Suspect]
     Active Substance: AZATHIOPRINE
     Indication: RHEUMATOID ARTHRITIS
     Dosage: 150 MILLIGRAM, 2 EVERY 1 DAY
     Route: 048
  43. ACETAMINOPHEN. [Suspect]
     Active Substance: ACETAMINOPHEN
     Indication: PRODUCT USED FOR UNKNOWN INDICATION
     Dosage: DOSAGE FORM: NOT SPECIFIED
     Route: 065
  44. APO AMITRIPTYLINE [Suspect]
     Active Substance: AMITRIPTYLINE
     Indication: PRODUCT USED FOR UNKNOWN INDICATION
     Dosage: 75.0 MILLIGRAM
     Route: 048
  45. APO AMITRIPTYLINE [Suspect]
     Active Substance: AMITRIPTYLINE
     Dosage: UNK
     Route: 065
  46. APO PREDNISONE [Suspect]
     Active Substance: PREDNISONE
     Dosage: UNK
     Route: 065
  47. BACTRIM [Suspect]
     Active Substance: SULFAMETHOXAZOLE\TRIMETHOPRIM
     Indication: PRODUCT USED FOR UNKNOWN INDICATION
     Dosage: DOSAGE FORM: NOT SPECIFIED
     Route: 065
  48. IMURAN [Suspect]
     Active Substance: AZATHIOPRINE
     Indication: PRODUCT USED FOR UNKNOWN INDICATION
     Dosage: 150.0 MILLIGRAM, 2 EVERY 1 DAY
     Route: 048
  49. IMURAN [Suspect]
     Active Substance: AZATHIOPRINE
     Indication: PRODUCT USED FOR UNKNOWN INDICATION
     Dosage: 150.0 MILLIGRAM, DOSAGE FORM: NOT SPECIFIED
     Route: 065
  50. METHOTREXATE. [Suspect]
     Active Substance: METHOTREXATE
     Indication: RHEUMATOID ARTHRITIS
     Dosage: 20.0 MILLIGRAM,
     Route: 048
  51. AZATHIOPRINE. [Suspect]
     Active Substance: AZATHIOPRINE
     Indication: PRODUCT USED FOR UNKNOWN INDICATION
     Dosage: 150.0 UNK
     Route: 065
  52. AMITRIPTYLINE HYDROCHLORIDE. [Suspect]
     Active Substance: AMITRIPTYLINE HYDROCHLORIDE
     Indication: PRODUCT USED FOR UNKNOWN INDICATION
     Dosage: 75.0 MILLIGRAM, 1 EVERY 1 DAY
     Route: 048
  53. FOLIC ACID. [Concomitant]
     Active Substance: FOLIC ACID
     Indication: PRODUCT USED FOR UNKNOWN INDICATION
     Dosage: DOSAGE FORM: NOT SPECIFIED
     Route: 065
  54. ENBREL [Suspect]
     Active Substance: ETANERCEPT
     Indication: RHEUMATOID ARTHRITIS
     Dosage: 50.0 MILLIGRAM
     Route: 058
  55. HYDROXYCHLOROQUINE SULFATE. [Suspect]
     Active Substance: HYDROXYCHLOROQUINE SULFATE
     Indication: PRODUCT USED FOR UNKNOWN INDICATION
     Dosage: UNK
     Route: 065
  56. ETANERCEPT [Suspect]
     Active Substance: ETANERCEPT
     Indication: RHEUMATOID ARTHRITIS
     Dosage: 50.0 MILLIGRAM
     Route: 058

REACTIONS (54)
  - Dry mouth [Unknown]
  - Musculoskeletal pain [Unknown]
  - Nausea [Unknown]
  - Scleritis [Unknown]
  - Conjunctivitis [Unknown]
  - Fibromyalgia [Unknown]
  - Pleuritic pain [Unknown]
  - Rheumatoid arthritis [Unknown]
  - Haemoglobin decreased [Unknown]
  - Bursitis [Unknown]
  - Eye irritation [Unknown]
  - Flank pain [Unknown]
  - Synovial fluid analysis [Unknown]
  - Peripheral swelling [Unknown]
  - Red blood cell count decreased [Unknown]
  - Arthralgia [Unknown]
  - Swelling face [Unknown]
  - Eye pain [Unknown]
  - Impaired work ability [Unknown]
  - Neoplasm malignant [Unknown]
  - Synovial cyst [Unknown]
  - Visual impairment [Unknown]
  - Therapeutic product effect decreased [Unknown]
  - Erythema [Unknown]
  - Crepitations [Unknown]
  - Dry eye [Unknown]
  - Musculoskeletal stiffness [Unknown]
  - Photophobia [Unknown]
  - Pruritus [Unknown]
  - Atelectasis [Unknown]
  - Cushingoid [Unknown]
  - Dyspnoea [Unknown]
  - Feeling jittery [Unknown]
  - Interstitial lung disease [Unknown]
  - Lung disorder [Unknown]
  - Pain [Unknown]
  - Pneumonia [Unknown]
  - Tenosynovitis stenosans [Unknown]
  - Pain in extremity [Unknown]
  - Abdominal pain [Unknown]
  - Tenderness [Unknown]
  - Ulcer [Unknown]
  - Contraindicated product administered [Unknown]
  - Joint effusion [Unknown]
  - Nodule [Unknown]
  - Joint swelling [Unknown]
  - Malaise [Unknown]
  - Rash [Unknown]
  - Infection [Unknown]
  - Ocular hyperaemia [Unknown]
  - Rheumatoid nodule [Unknown]
  - Thrombosis [Unknown]
  - Antinuclear antibody positive [Unknown]
  - Wheezing [Unknown]
